FAERS Safety Report 25786229 (Version 1)
Quarter: 2025Q3

REPORT INFORMATION
  Report Type: Spontaneous
  Country: US (occurrence: None)
  Receive Date: 20250909
  Receipt Date: 20250909
  Transmission Date: 20251020
  Serious: Yes (Disabling)
  Sender: FDA-CTU
  Company Number: None

PATIENT
  Age: 24 Year
  Sex: Female
  Weight: 58.5 kg

DRUGS (1)
  1. CIPROFLOXACIN [Suspect]
     Active Substance: CIPROFLOXACIN
     Dates: start: 20231022, end: 20231025

REACTIONS (5)
  - Asthenia [None]
  - Arthralgia [None]
  - Communication disorder [None]
  - Therapy cessation [None]
  - Gait disturbance [None]

NARRATIVE: CASE EVENT DATE: 20231022
